FAERS Safety Report 14122329 (Version 1)
Quarter: 2017Q4

REPORT INFORMATION
  Report Type: Spontaneous
  Country: US (occurrence: None)
  Receive Date: 20171024
  Receipt Date: 20171024
  Transmission Date: 20180321
  Serious: No
  Sender: FDA-Public Use
  Company Number: None

PATIENT
  Age: 69 Year
  Sex: Female
  Weight: 48.53 kg

DRUGS (3)
  1. TUMS [Concomitant]
     Active Substance: CALCIUM CARBONATE
  2. SUPREP BOWEL PREP [Suspect]
     Active Substance: MAGNESIUM SULFATE\POTASSIUM SULFATE\SODIUM SULFATE
     Indication: COLONOSCOPY
     Dosage: 2 6 OZ BOTTLES 1ST BOTTLE AT 3PM 2ND BOTTLE AT 3 AM, BY MOUTH
     Route: 048
     Dates: start: 20170913, end: 20170914
  3. TRAVATAN Z [Concomitant]
     Active Substance: TRAVOPROST

REACTIONS (2)
  - Haematemesis [None]
  - Oesophageal rupture [None]

NARRATIVE: CASE EVENT DATE: 20170914
